FAERS Safety Report 15672830 (Version 5)
Quarter: 2020Q1

REPORT INFORMATION
  Report Type: Report from Study
  Country: US (occurrence: US)
  Receive Date: 20181129
  Receipt Date: 20200129
  Transmission Date: 20200409
  Serious: Yes (Other)
  Sender: FDA-Public Use
  Company Number: US-TESARO, INC-US-2018TSO01439

PATIENT
  Age: 43 Year
  Sex: Female

DRUGS (18)
  1. NIRAPARIB CAPSULE [Suspect]
     Active Substance: NIRAPARIB
     Dosage: 200 MG, QD
     Route: 048
  2. DEXAMETHASONE. [Concomitant]
     Active Substance: DEXAMETHASONE
     Indication: PRODUCT USED FOR UNKNOWN INDICATION
     Dosage: UNK
  3. OXYCODONE [Concomitant]
     Active Substance: OXYCODONE
     Indication: PRODUCT USED FOR UNKNOWN INDICATION
     Dosage: UNK
  4. COMPAZINE [Concomitant]
     Active Substance: PROCHLORPERAZINE MALEATE
     Indication: PRODUCT USED FOR UNKNOWN INDICATION
     Dosage: UNK
  5. IBUPROFEN. [Concomitant]
     Active Substance: IBUPROFEN
     Indication: PRODUCT USED FOR UNKNOWN INDICATION
     Dosage: UNK
  6. SERTRALINE [Concomitant]
     Active Substance: SERTRALINE HYDROCHLORIDE
     Indication: PRODUCT USED FOR UNKNOWN INDICATION
     Dosage: UNK
  7. TYLENOL [Concomitant]
     Active Substance: ACETAMINOPHEN
     Indication: PRODUCT USED FOR UNKNOWN INDICATION
     Dosage: UNK
  8. NIRAPARIB CAPSULE [Suspect]
     Active Substance: NIRAPARIB
     Indication: OVARIAN CANCER
     Dosage: 300 MG, QD
     Route: 048
     Dates: start: 20180316, end: 20180404
  9. NIRAPARIB CAPSULE [Suspect]
     Active Substance: NIRAPARIB
     Dosage: 300 MG, DAILY
     Route: 048
     Dates: start: 20180919, end: 20190311
  10. NIRAPARIB CAPSULE [Suspect]
     Active Substance: NIRAPARIB
     Dosage: 300 MG, QD
     Route: 048
     Dates: start: 20190325
  11. MORPHINE [Concomitant]
     Active Substance: MORPHINE
     Indication: OVARIAN CANCER
     Dosage: 300 MG, QD
     Route: 048
     Dates: start: 20180316
  12. NIRAPARIB CAPSULE [Suspect]
     Active Substance: NIRAPARIB
     Dosage: 200 MG, QD
     Route: 048
  13. BETAMETHASONE. [Concomitant]
     Active Substance: BETAMETHASONE
     Indication: PRODUCT USED FOR UNKNOWN INDICATION
     Dosage: UNK
  14. ONDANSETRON [Concomitant]
     Active Substance: ONDANSETRON
     Indication: PRODUCT USED FOR UNKNOWN INDICATION
     Dosage: UNK
  15. NIRAPARIB CAPSULE [Suspect]
     Active Substance: NIRAPARIB
     Dosage: 200 MG, QD
     Route: 048
  16. NIRAPARIB CAPSULE [Suspect]
     Active Substance: NIRAPARIB
     Dosage: 300 MG, QD
     Route: 048
     Dates: start: 20180418, end: 20180509
  17. NIRAPARIB CAPSULE [Suspect]
     Active Substance: NIRAPARIB
     Dosage: 300 MG, QD
     Route: 048
     Dates: start: 20180524, end: 2018
  18. MORPHINE [Concomitant]
     Active Substance: MORPHINE
     Dosage: 300 MG, QD
     Route: 048
     Dates: end: 20180404

REACTIONS (21)
  - Diarrhoea [Unknown]
  - Vomiting [Unknown]
  - Headache [Not Recovered/Not Resolved]
  - Dizziness [Not Recovered/Not Resolved]
  - Dysgeusia [Not Recovered/Not Resolved]
  - Abdominal discomfort [Recovered/Resolved]
  - Haemoglobin decreased [Not Recovered/Not Resolved]
  - Breast pain [Unknown]
  - Fatigue [Not Recovered/Not Resolved]
  - Influenza [Recovered/Resolved]
  - Respiratory tract infection [Recovered/Resolved]
  - Pyrexia [Recovered/Resolved]
  - Nasopharyngitis [Recovered/Resolved]
  - Nausea [Not Recovered/Not Resolved]
  - Vitamin D deficiency [Unknown]
  - Emotional distress [Unknown]
  - Platelet count decreased [Recovered/Resolved]
  - Back pain [Recovering/Resolving]
  - Platelet count decreased [Not Recovered/Not Resolved]
  - Pain [Recovering/Resolving]
  - Pain in extremity [Unknown]

NARRATIVE: CASE EVENT DATE: 20181017
